FAERS Safety Report 12968943 (Version 1)
Quarter: 2016Q4

REPORT INFORMATION
  Report Type: Spontaneous
  Country: KR (occurrence: KR)
  Receive Date: 20161123
  Receipt Date: 20161123
  Transmission Date: 20170207
  Serious: Yes (Other)
  Sender: FDA-Public Use
  Company Number: KR-PFIZER INC-2016539315

PATIENT
  Sex: Female

DRUGS (1)
  1. DUAVIVE [Suspect]
     Active Substance: BAZEDOXIFENE ACETATE\ESTROGENS, CONJUGATED
     Route: 048

REACTIONS (1)
  - Postmenopausal haemorrhage [Unknown]
